FAERS Safety Report 22400246 (Version 1)
Quarter: 2023Q2

REPORT INFORMATION
  Report Type: Spontaneous
  Country: US (occurrence: None)
  Receive Date: 20230601
  Receipt Date: 20230601
  Transmission Date: 20230721
  Serious: Yes (Life-Threatening, Other)
  Sender: FDA-Public Use
  Company Number: None

PATIENT
  Age: 20 Year
  Sex: Female
  Weight: 57.15 kg

DRUGS (6)
  1. TERBINAFINE [Suspect]
     Active Substance: TERBINAFINE
     Indication: Tinea pedis
     Dosage: OTHER QUANTITY : 90 TABLET(S);?FREQUENCY : DAILY;?
     Route: 048
     Dates: start: 20230525, end: 20230601
  2. VYVANSE [Concomitant]
     Active Substance: LISDEXAMFETAMINE DIMESYLATE
  3. NORGESTIMATE [Concomitant]
     Active Substance: NORGESTIMATE
  4. ETHINYL ESTRADIOL [Concomitant]
     Active Substance: ETHINYL ESTRADIOL
  5. ALLEGRA [Concomitant]
     Active Substance: FEXOFENADINE HYDROCHLORIDE
  6. Women^s one a day petite multivitamin [Concomitant]

REACTIONS (10)
  - Depression [None]
  - Apathy [None]
  - Depressed mood [None]
  - Fear [None]
  - Nausea [None]
  - Dizziness [None]
  - Decreased appetite [None]
  - Headache [None]
  - Asthenia [None]
  - Gastrointestinal disorder [None]

NARRATIVE: CASE EVENT DATE: 20230525
